FAERS Safety Report 5051125-1 (Version None)
Quarter: 2006Q3

REPORT INFORMATION
  Report Type: 
  Country: None (occurrence: None)
  Receive Date: 20060710
  Receipt Date: 20060628
  Transmission Date: 20061208
  Serious: Yes (Other)
  Sender: FDA-Public Use
  Company Number: 2006082194

PATIENT
  Sex: Female
  Weight: 74.8435 kg

DRUGS (3)
  1. CELEBREX [Suspect]
     Indication: ARTHRITIS
     Dosage: 200 MG (200 MG, 1 IN 1 D), UNKNOWN
  2. GLIPIZIDE [Concomitant]
  3. DIURETICS (DIURETICS) [Concomitant]

REACTIONS (4)
  - CEREBRAL INFARCTION [None]
  - CEREBROVASCULAR ACCIDENT [None]
  - DIZZINESS [None]
  - MITRAL VALVE DISEASE [None]
